FAERS Safety Report 5201977-7 (Version None)
Quarter: 2007Q1

REPORT INFORMATION
  Report Type: 
  Country: None (occurrence: None)
  Receive Date: 20070109
  Receipt Date: 20070102
  Transmission Date: 20070707
  Serious: Yes (Hospitalization, Other)
  Sender: FDA-Public Use
  Company Number: US-JNJFOC-20061200693

PATIENT
  Sex: Male
  Weight: 69.4 kg

DRUGS (11)
  1. REMICADE [Suspect]
     Route: 042
  2. REMICADE [Suspect]
     Indication: CROHN'S DISEASE
     Route: 042
  3. NEXIUM [Concomitant]
  4. B 12 [Concomitant]
  5. ACTONIL [Concomitant]
  6. 6-MP [Concomitant]
  7. MAGNESIUM [Concomitant]
  8. TRAMADOL HCL [Concomitant]
  9. TRAZEDONE [Concomitant]
  10. OSCAL [Concomitant]
  11. VITAMIN D [Concomitant]

REACTIONS (2)
  - LYMPHADENOPATHY [None]
  - PENIS CARCINOMA METASTATIC [None]
